FAERS Safety Report 4840357-0 (Version None)
Quarter: 2005Q4

REPORT INFORMATION
  Report Type: 
  Country: None (occurrence: None)
  Receive Date: 20051025
  Receipt Date: 20050627
  Transmission Date: 20060501
  Serious: Yes (Other)
  Sender: FDA-Public Use
  Company Number: US-JNJFOC-20050503371

PATIENT
  Sex: Female
  Weight: 136.0791 kg

DRUGS (10)
  1. FLEXERIL [Suspect]
     Indication: BACK PAIN
     Dosage: 10 MG, 3 IN 1 DAY, ORAL
     Route: 048
     Dates: start: 19900101
  2. OVRAL (EUGYNON) [Concomitant]
  3. MICROBID (BACTRIM) [Concomitant]
  4. ORAMORPH SR [Concomitant]
  5. LANTUS [Concomitant]
  6. NORVAC (AMLODIPINE BESILATE) [Concomitant]
  7. NITROQUICK (GLYCERYL TRINITRATE) [Concomitant]
  8. GLUCOSAMINE (GLUCOSAMINE) [Concomitant]
  9. ZANTAC [Concomitant]
  10. VENTOLIN [Concomitant]

REACTIONS (3)
  - ANGINA PECTORIS [None]
  - HEART RATE INCREASED [None]
  - MYOCARDIAL INFARCTION [None]
